FAERS Safety Report 19666176 (Version 2)
Quarter: 2021Q3

REPORT INFORMATION
  Report Type: Spontaneous
  Country: CN (occurrence: CN)
  Receive Date: 20210806
  Receipt Date: 20210814
  Transmission Date: 20211014
  Serious: Yes (Other)
  Sender: FDA-Public Use
  Company Number: CN-JNJFOC-20210808805

PATIENT
  Age: 66 Year
  Sex: Female

DRUGS (2)
  1. XARELTO [Suspect]
     Active Substance: RIVAROXABAN
     Indication: HEPATITIS B
     Dosage: UNK
     Route: 048
     Dates: start: 202107
  2. XARELTO [Suspect]
     Active Substance: RIVAROXABAN
     Indication: HEPATIC HAEMORRHAGE

REACTIONS (3)
  - Portal vein dilatation [Unknown]
  - Contraindicated product administered [Unknown]
  - Off label use [Unknown]

NARRATIVE: CASE EVENT DATE: 2021
